FAERS Safety Report 5712153-3 (Version None)
Quarter: 2008Q2

REPORT INFORMATION
  Report Type: 
  Country: None (occurrence: None)
  Receive Date: 20080417
  Receipt Date: 20080408
  Transmission Date: 20081010
  Serious: Yes (Hospitalization)
  Sender: FDA-Public Use
  Company Number: 2008SP005329

PATIENT
  Age: 74 Year
  Sex: Female
  Weight: 48.8 kg

DRUGS (2)
  1. TEMODAR [Suspect]
     Indication: ACUTE MYELOID LEUKAEMIA
     Dosage: 100 MG/M2;QD;PO, 200 MG/M2;QD;PO
     Route: 048
     Dates: start: 20080206, end: 20080219
  2. TEMODAR [Suspect]
     Indication: ACUTE MYELOID LEUKAEMIA
     Dosage: 100 MG/M2;QD;PO, 200 MG/M2;QD;PO
     Route: 048
     Dates: start: 20080220, end: 20080226

REACTIONS (13)
  - ABDOMINAL PAIN [None]
  - CHLOROMA [None]
  - CONTUSION [None]
  - CULTURE POSITIVE [None]
  - ESCHERICHIA INFECTION [None]
  - FEBRILE NEUTROPENIA [None]
  - GASTROINTESTINAL DISORDER [None]
  - INAPPROPRIATE ANTIDIURETIC HORMONE SECRETION [None]
  - KIDNEY INFECTION [None]
  - ORAL HERPES [None]
  - RENAL ABSCESS [None]
  - RENAL MASS [None]
  - URINARY TRACT INFECTION [None]
